FAERS Safety Report 23206234 (Version 1)
Quarter: 2023Q4

REPORT INFORMATION
  Report Type: Spontaneous
  Country: JP (occurrence: JP)
  Receive Date: 20231120
  Receipt Date: 20231120
  Transmission Date: 20240110
  Serious: No
  Sender: FDA-Public Use
  Company Number: JP-WW-2023-02985-1-LUN

PATIENT
  Age: 68 Year
  Sex: Male

DRUGS (2)
  1. LUNESTA [Suspect]
     Active Substance: ESZOPICLONE
     Indication: Insomnia
     Route: 048
     Dates: start: 20211105
  2. LUNESTA [Suspect]
     Active Substance: ESZOPICLONE
     Indication: Insomnia
     Route: 048
     Dates: end: 20230615

REACTIONS (2)
  - Erythema [Recovering/Resolving]
  - Erythema multiforme [Unknown]
